FAERS Safety Report 20825845 (Version 2)
Quarter: 2022Q2

REPORT INFORMATION
  Report Type: Report from Study
  Country: TR (occurrence: TR)
  Receive Date: 20220513
  Receipt Date: 20220518
  Transmission Date: 20220721
  Serious: Yes (Hospitalization)
  Sender: FDA-Public Use
  Company Number: TR-JNJFOC-20220513845

PATIENT
  Age: 66 Year
  Sex: Female
  Weight: 82 kg

DRUGS (6)
  1. DARATUMUMAB [Suspect]
     Active Substance: DARATUMUMAB
     Indication: Plasma cell myeloma
     Dosage: MOST RECENT DOSE 05-MAY-2022?MED KIT 22476
     Route: 058
     Dates: start: 20190614
  2. BORTEZOMIB [Suspect]
     Active Substance: BORTEZOMIB
     Indication: Plasma cell myeloma
     Dosage: MED KIT NUMBER 51325-04
     Route: 058
     Dates: start: 20190614, end: 20191213
  3. LENALIDOMIDE [Suspect]
     Active Substance: LENALIDOMIDE
     Indication: Plasma cell myeloma
     Dosage: MOST RECENT DOSE 05-MAY-2022?MED KIT NUMBER 69616
     Route: 048
     Dates: start: 20190614
  4. DEXAMETHASONE [Suspect]
     Active Substance: DEXAMETHASONE
     Indication: Plasma cell myeloma
     Dosage: MED KIT NUMBER 39794
     Route: 048
     Dates: start: 20190614, end: 20220404
  5. FUROSEMIDE [Concomitant]
     Active Substance: FUROSEMIDE
  6. BETOPROLOL [Concomitant]

REACTIONS (1)
  - Arrhythmia [Recovering/Resolving]

NARRATIVE: CASE EVENT DATE: 20220404
